FAERS Safety Report 7105730-9 (Version None)
Quarter: 2010Q4

REPORT INFORMATION
  Report Type: 
  Country: None (occurrence: None)
  Receive Date: 20101116
  Receipt Date: 20101108
  Transmission Date: 20110411
  Serious: Yes (Other)
  Sender: FDA-Public Use
  Company Number: PHHY2010US61205

PATIENT
  Sex: Female

DRUGS (1)
  1. EXTAVIA [Suspect]
     Indication: MULTIPLE SCLEROSIS
     Dosage: 0.25 MG, QOD
     Route: 058
     Dates: start: 20100501

REACTIONS (6)
  - COGNITIVE DISORDER [None]
  - CONFUSIONAL STATE [None]
  - FATIGUE [None]
  - INCOHERENT [None]
  - LETHARGY [None]
  - TREATMENT NONCOMPLIANCE [None]
